FAERS Safety Report 7283278-9 (Version None)
Quarter: 2011Q1

REPORT INFORMATION
  Report Type: 
  Country: None (occurrence: None)
  Receive Date: 20110209
  Receipt Date: 20110131
  Transmission Date: 20110831
  Serious: Yes (Life-Threatening, Hospitalization, Other)
  Sender: FDA-Public Use
  Company Number: FR-CELGENEUS-056-50794-10102535

PATIENT
  Sex: Male
  Weight: 74 kg

DRUGS (6)
  1. NEULASTA [Suspect]
     Route: 058
     Dates: start: 20100913
  2. VIDAZA [Suspect]
     Route: 058
     Dates: start: 20100301, end: 20110102
  3. GRANOCYTE 34 [Suspect]
     Indication: NEUTROPENIA
     Route: 065
     Dates: start: 20101212, end: 20101212
  4. GRANOCYTE 34 [Suspect]
     Route: 065
     Dates: start: 20110115, end: 20110115
  5. NEULASTA [Suspect]
     Indication: NEUTROPENIA
     Route: 058
     Dates: start: 20100310
  6. VIDAZA [Suspect]
     Route: 058
     Dates: start: 20091005

REACTIONS (3)
  - PYODERMA GANGRENOSUM [None]
  - FEBRILE NEUTROPENIA [None]
  - BONE MARROW FAILURE [None]
